FAERS Safety Report 10354846 (Version 2)
Quarter: 2014Q3

REPORT INFORMATION
  Report Type: Spontaneous
  Country: CA (occurrence: CA)
  Receive Date: 20140731
  Receipt Date: 20140820
  Transmission Date: 20150326
  Serious: Yes (Other)
  Sender: FDA-Public Use
  Company Number: CA-BAXTER-2014BAX042190

PATIENT
  Age: 84 Year
  Sex: Female

DRUGS (3)
  1. FEIBA NF [Suspect]
     Active Substance: ANTI-INHIBITOR COAGULANT COMPLEX
     Indication: OFF LABEL USE
     Dosage: 7 X 1000 UNITS
     Route: 065
     Dates: start: 20140717
  2. DABIGATRAN [Concomitant]
     Active Substance: DABIGATRAN
     Indication: PRODUCT USED FOR UNKNOWN INDICATION
     Route: 065
  3. FEIBA NF [Suspect]
     Active Substance: ANTI-INHIBITOR COAGULANT COMPLEX
     Indication: CLOTTING FACTOR TRANSFUSION
     Dosage: 5 X 1000 UNITS
     Route: 065
     Dates: start: 20140717

REACTIONS (2)
  - Musculoskeletal disorder [Unknown]
  - Venous thrombosis limb [Unknown]
